FAERS Safety Report 6564632-7 (Version None)
Quarter: 2010Q1

REPORT INFORMATION
  Report Type: 
  Country: None (occurrence: None)
  Receive Date: 20100201
  Receipt Date: 20100120
  Transmission Date: 20100710
  Serious: No
  Sender: FDA-Public Use
  Company Number: US-B.I. PHARMACEUTICALS,INC./RIDGEFIELD-2010-BP-00695BP

PATIENT
  Sex: Female

DRUGS (1)
  1. VIRAMUNE [Suspect]

REACTIONS (3)
  - HEPATIC ENZYME INCREASED [None]
  - PYREXIA [None]
  - RASH [None]
